FAERS Safety Report 6473050-1 (Version None)
Quarter: 2009Q4

REPORT INFORMATION
  Report Type: 
  Country: None (occurrence: None)
  Receive Date: 20091119
  Receipt Date: 20091105
  Transmission Date: 20100525
  Serious: Yes (Hospitalization)
  Sender: FDA-Public Use
  Company Number: US-IGSA-IG608

PATIENT
  Age: 44 Year
  Sex: Female
  Weight: 72 kg

DRUGS (10)
  1. FLEBOGAMMA 5% DIF [Suspect]
     Indication: MYASTHENIA GRAVIS
     Dosage: 30 GM IV
     Route: 042
     Dates: start: 20091015, end: 20091016
  2. VOLTAREN [Concomitant]
  3. NORVASC [Concomitant]
  4. NEXIUM [Concomitant]
  5. PROTONIX [Concomitant]
  6. POTASSIUM CLORIDE [Concomitant]
  7. VITAMIN B-12 [Concomitant]
  8. MESTINON [Concomitant]
  9. SYNTHROID [Concomitant]
  10. PREDNISONE [Concomitant]

REACTIONS (9)
  - ABDOMINAL PAIN [None]
  - BLOOD PRESSURE INCREASED [None]
  - BODY TEMPERATURE INCREASED [None]
  - CHILLS [None]
  - GAIT DISTURBANCE [None]
  - HYPOAESTHESIA [None]
  - PAIN IN EXTREMITY [None]
  - PARAESTHESIA [None]
  - TREMOR [None]
